FAERS Safety Report 22206641 (Version 1)
Quarter: 2023Q2

REPORT INFORMATION
  Report Type: Spontaneous
  Country: US (occurrence: None)
  Receive Date: 20230412
  Receipt Date: 20230412
  Transmission Date: 20230721
  Serious: Yes (Other)
  Sender: FDA-Public Use
  Company Number: None

PATIENT
  Age: 57 Year
  Sex: Female
  Weight: 53.1 kg

DRUGS (2)
  1. DEXAMETHASONE\TOBRAMYCIN [Suspect]
     Active Substance: DEXAMETHASONE\TOBRAMYCIN
     Indication: Eye infection
     Dosage: OTHER QUANTITY : 5 DROP(S);?FREQUENCY : 4 TIMES A DAY;?
     Route: 047
     Dates: start: 20230411, end: 20230412
  2. VITAMINS [Concomitant]
     Active Substance: VITAMINS

REACTIONS (2)
  - Dysphonia [None]
  - Aphonia [None]

NARRATIVE: CASE EVENT DATE: 20230412
